FAERS Safety Report 13648669 (Version 1)
Quarter: 2017Q2

REPORT INFORMATION
  Report Type: Spontaneous
  Country: GB (occurrence: GB)
  Receive Date: 20170613
  Receipt Date: 20170613
  Transmission Date: 20170830
  Serious: Yes (Other)
  Sender: FDA-Public Use
  Company Number: GB-MYLANLABS-2017M1035113

PATIENT

DRUGS (4)
  1. PEGASPARGASE [Suspect]
     Active Substance: PEGASPARGASE
     Indication: T-CELL TYPE ACUTE LEUKAEMIA
     Dosage: 1,000 U/M2, CYCLIC THERAPY AS PER UKALL 2011 REGIMEN B INDUCTION PROTOCOL
     Route: 065
  2. DEXAMETHASONE. [Suspect]
     Active Substance: DEXAMETHASONE
     Indication: T-CELL TYPE ACUTE LEUKAEMIA
     Dosage: 25 MG/M2, CYCLIC THERAPY AS PER UKALL 2011 REGIMEN B INDUCTION PROTOCOL
     Route: 065
  3. DAUNORUBICIN [Suspect]
     Active Substance: DAUNORUBICIN
     Indication: T-CELL TYPE ACUTE LEUKAEMIA
     Dosage: 25 MG/M2, CYCLIC THERAPY AS PER UKALL 2011 REGIMEN B INDUCTION PROTOCOL
     Route: 065
  4. VINCRISTINE [Suspect]
     Active Substance: VINCRISTINE
     Indication: T-CELL TYPE ACUTE LEUKAEMIA
     Dosage: 1.5 MG/M2, CYCLIC THERAPY AS PER UKALL 2011 REGIMEN B INDUCTION PROTOCOL
     Route: 065

REACTIONS (1)
  - Cholecystitis acute [Recovering/Resolving]
